FAERS Safety Report 4785979-0 (Version None)
Quarter: 2005Q4

REPORT INFORMATION
  Report Type: 
  Country: None (occurrence: None)
  Receive Date: 20051003
  Receipt Date: 20050923
  Transmission Date: 20060501
  Serious: Yes (Hospitalization)
  Sender: FDA-Public Use
  Company Number: PHNR2005AU01445

PATIENT
  Age: 94 Year
  Sex: Male

DRUGS (8)
  1. NITRODERM [Suspect]
     Indication: MYOCARDIAL ISCHAEMIA
     Dosage: 25 MG, QD
     Route: 062
     Dates: start: 20041120, end: 20041123
  2. CEFTRIAXONE [Suspect]
     Dosage: 1 G, QD
     Route: 042
     Dates: start: 20041120, end: 20041121
  3. ROXITHROMYCIN [Suspect]
     Dosage: 300 MG, QD
     Route: 048
     Dates: start: 20041120, end: 20041130
  4. FUROSEMIDE [Suspect]
     Indication: LEFT VENTRICULAR FAILURE
     Dosage: 40 MG, QD
     Route: 042
     Dates: start: 20041120, end: 20041123
  5. PRAZOSIN HCL [Suspect]
     Indication: HYPERTENSION
     Dosage: 6 MG, QD
     Route: 048
     Dates: end: 20041121
  6. IMDUR [Suspect]
     Indication: MYOCARDIAL ISCHAEMIA
     Dosage: 120 MG, QD
     Route: 048
     Dates: end: 20041121
  7. ATENOLOL [Suspect]
     Dosage: 75 MG, QD
     Route: 048
     Dates: end: 20041121
  8. NIFEDIPINE [Suspect]
     Dosage: 20 MG, QD
     Route: 048
     Dates: end: 20041121

REACTIONS (2)
  - CAMPYLOBACTER INTESTINAL INFECTION [None]
  - FAECES DISCOLOURED [None]
